FAERS Safety Report 16869406 (Version 1)
Quarter: 2019Q3

REPORT INFORMATION
  Report Type: Spontaneous
  Country: CN (occurrence: CN)
  Receive Date: 20190930
  Receipt Date: 20190930
  Transmission Date: 20191005
  Serious: Yes (Other)
  Sender: FDA-Public Use
  Company Number: CN-BAXTER-2019BAX018894

PATIENT
  Age: 7 Year
  Sex: Male
  Weight: 23 kg

DRUGS (41)
  1. 5% GLUCOSE  INJECTION [Suspect]
     Active Substance: DEXTROSE
     Indication: MEDICATION DILUTION
     Dosage: 1ST TO 3RD CHEMOTHERAPY WITH CYTARABINE HYDROCHLORIDE + 5% GLUCOSE
     Route: 041
  2. CYTARABINE HYDROCHLORIDE [Suspect]
     Active Substance: CYTARABINE HYDROCHLORIDE
     Dosage: DOSE RE-INTRODUCED WITH CYTARABINE HYDROCHLORIDE + 5% GLUCOSE
     Route: 041
  3. DEXAMETHASONE SODIUM PHOSPHATE. [Suspect]
     Active Substance: DEXAMETHASONE SODIUM PHOSPHATE
     Dosage: DOSE RE-INTRODUCED WITH 0.9% SODIUM CHLORIDE + DEXAMETHASONE SODIUM PHOSPHATE + METHOTREXATE.
     Route: 037
  4. ENDOXAN [Suspect]
     Active Substance: CYCLOPHOSPHAMIDE
     Dosage: 4TH CHEMOTHERAPY WITH ENDOXAN + 0.9% SODIUM CHLORIDE.
     Route: 041
     Dates: start: 20190827, end: 20190827
  5. ENDOXAN [Suspect]
     Active Substance: CYCLOPHOSPHAMIDE
     Dosage: DOSE RE-INTRODUCED WITH ENDOXAN + 0.9% SODIUM CHLORIDE
     Route: 041
  6. 0.9% SODIUM CHLORIDE INJECTION [Suspect]
     Active Substance: SODIUM CHLORIDE
     Dosage: DOSE RE-INTRODUCED WITH 0.9% SODIUM CHLORIDE + DEXAMETHASONE SODIUM PHOSPHATE + CYTOSAR.
     Route: 037
  7. 0.9% SODIUM CHLORIDE INJECTION [Suspect]
     Active Substance: SODIUM CHLORIDE
     Dosage: 1ST TO 3RD CHEMOTHERAPY WITH 0.9% SODIUM CHLORIDE + VINCRISTINE SULFATE.
     Route: 042
  8. METHOTREXATE. [Suspect]
     Active Substance: METHOTREXATE
     Dosage: 4TH CHEMOTHERAPY WITH 0.9% SODIUM CHLORIDE + DEXAMETHASONE SODIUM PHOSPHATE + METHOTREXATE.
     Route: 037
     Dates: start: 20190827, end: 20190827
  9. METHOTREXATE. [Suspect]
     Active Substance: METHOTREXATE
     Dosage: DOSE RE-INTRODUCED WITH 0.9% SODIUM CHLORIDE + DEXAMETHASONE SODIUM PHOSPHATE + METHOTREXATE.
     Route: 037
  10. CYTARABINE HYDROCHLORIDE [Suspect]
     Active Substance: CYTARABINE HYDROCHLORIDE
     Dosage: 4TH CHEMOTHERAPY WITH CYTARABINE HYDROCHLORIDE + 5% GLUCOSE
     Route: 041
     Dates: start: 20190827, end: 20190903
  11. 0.9% SODIUM CHLORIDE INJECTION [Suspect]
     Active Substance: SODIUM CHLORIDE
     Indication: MEDICATION DILUTION
     Dosage: 1ST TO 3RD CHEMOTHERAPY WITH ENDOXAN + 0.9% SODIUM CHLORIDE
     Route: 041
  12. 0.9% SODIUM CHLORIDE INJECTION [Suspect]
     Active Substance: SODIUM CHLORIDE
     Dosage: 4TH CHEMOTHERAPY WITH 0.9% SODIUM CHLORIDE + DEXAMETHASONE SODIUM PHOSPHATE + CYTOSAR.
     Route: 037
     Dates: start: 20190827, end: 20190827
  13. 0.9% SODIUM CHLORIDE INJECTION [Suspect]
     Active Substance: SODIUM CHLORIDE
     Dosage: 4TH CHEMOTHERAPY WITH 0.9% SODIUM CHLORIDE + VINCRISTINE SULFATE
     Route: 042
     Dates: start: 20190827, end: 20190827
  14. CYTARABINE HYDROCHLORIDE [Suspect]
     Active Substance: CYTARABINE HYDROCHLORIDE
     Indication: ACUTE LYMPHOCYTIC LEUKAEMIA
     Dosage: 1ST TO 3RD CHEMOTHERAPY WITH CYTARABINE HYDROCHLORIDE + 5% GLUCOSE
     Route: 041
  15. VINCRISTINE SULFATE. [Suspect]
     Active Substance: VINCRISTINE SULFATE
     Dosage: 4TH CHEMOTHERAPY WITH VINCRISTINE SULFATE + 0.9% SODIUM CHLORIDE
     Route: 042
     Dates: start: 20190827, end: 20190827
  16. DEXAMETHASONE SODIUM PHOSPHATE. [Suspect]
     Active Substance: DEXAMETHASONE SODIUM PHOSPHATE
     Indication: ACUTE LYMPHOCYTIC LEUKAEMIA
     Dosage: 1ST TO 3RD CHEMOTHERAPY WITH 0.9% SODIUM CHLORIDE + DEXAMETHASONE SODIUM PHOSPHATE + METHOTREXATE.
     Route: 037
  17. 0.9% SODIUM CHLORIDE INJECTION [Suspect]
     Active Substance: SODIUM CHLORIDE
     Dosage: 4TH CHEMOTHERAPY WITH ENDOXAN + 0.9%SODIUM CHLORIDE
     Route: 041
     Dates: start: 20190827, end: 20190827
  18. 5% GLUCOSE  INJECTION [Suspect]
     Active Substance: DEXTROSE
     Dosage: 4TH CHEMOTHERAPY WITH CYTARABINE HYDROCHLORIDE + 5% GLUCOSE
     Route: 041
     Dates: start: 20190827, end: 20190903
  19. 5% GLUCOSE  INJECTION [Suspect]
     Active Substance: DEXTROSE
     Dosage: DOSE RE-INTRODUCED WITH CYTARABINE HYDROCHLORIDE + 5% GLUCOSE
     Route: 041
  20. CYTOSAR [Suspect]
     Active Substance: CYTARABINE
     Dosage: DOSE RE-INTRODUCED WITH 0.9% SODIUM CHLORIDE + DEXAMETHASONE SODIUM PHOSPHATE + CYTOSAR.
     Route: 037
  21. DEXAMETHASONE SODIUM PHOSPHATE. [Suspect]
     Active Substance: DEXAMETHASONE SODIUM PHOSPHATE
     Dosage: 1ST TO 3RD CHEMOTHERAPY WITH 0.9% SODIUM CHLORIDE + DEXAMETHASONE SODIUM PHOSPHATE + CYTOSAR.
     Route: 037
  22. 0.9% SODIUM CHLORIDE INJECTION [Suspect]
     Active Substance: SODIUM CHLORIDE
     Dosage: DOSE RE-INTRODUCED WITH ENDOXAN + 0.9% SODIUM CHLORIDE
     Route: 041
  23. 0.9% SODIUM CHLORIDE INJECTION [Suspect]
     Active Substance: SODIUM CHLORIDE
     Dosage: 1ST TO 3RD CHEMOTHERAPY WITH 0.9% SODIUM CHLORIDE + DEXAMETHASONE SODIUM PHOSPHATE + METHOTREXATE.
     Route: 037
  24. 0.9% SODIUM CHLORIDE INJECTION [Suspect]
     Active Substance: SODIUM CHLORIDE
     Dosage: DOSE RE-INTRODUCED WITH 0.9% SODIUM CHLORIDE + DEXAMETHASONE SODIUM PHOSPHATE + METHOTREXATE.
     Route: 037
  25. CYTOSAR [Suspect]
     Active Substance: CYTARABINE
     Indication: ACUTE LYMPHOCYTIC LEUKAEMIA
     Dosage: 1ST TO 3RD CHEMOTHERAPY WITH 0.9% SODIUM CHLORIDE + DEXAMETHASONE SODIUM PHOSPHATE + CYTOSAR.
     Route: 037
  26. CYTOSAR [Suspect]
     Active Substance: CYTARABINE
     Dosage: 4TH CHEMOTHERAPY WITH 0.9% SODIUM CHLORIDE + DEXAMETHASONE SODIUM PHOSPHATE + CYTOSAR.
     Route: 037
     Dates: start: 20190827, end: 20190827
  27. VINCRISTINE SULFATE. [Suspect]
     Active Substance: VINCRISTINE SULFATE
     Dosage: 4TH CHEMOTHERAPY WITH VINCRISTINE SULFATE + 0.9% SODIUM CHLORIDE
     Route: 042
     Dates: start: 20190903, end: 20190903
  28. VINCRISTINE SULFATE. [Suspect]
     Active Substance: VINCRISTINE SULFATE
     Dosage: DOSE RE-INTRODUCED VINCRISTINE SULFATE + 0.9% SODIUM CHLORIDE
     Route: 042
  29. DEXAMETHASONE SODIUM PHOSPHATE. [Suspect]
     Active Substance: DEXAMETHASONE SODIUM PHOSPHATE
     Dosage: 4TH CHEMOTHERAPY WITH 0.9% SODIUM CHLORIDE + DEXAMETHASONE SODIUM PHOSPHATE + METHOTREXATE.
     Route: 037
     Dates: start: 20190827, end: 20190827
  30. 0.9% SODIUM CHLORIDE INJECTION [Suspect]
     Active Substance: SODIUM CHLORIDE
     Dosage: 4TH CHEMOTHERAPY WITH 0.9% SODIUM CHLORIDE + DEXAMETHASONE SODIUM PHOSPHATE + METHOTREXATE.
     Route: 037
     Dates: start: 20190827, end: 20190827
  31. 0.9% SODIUM CHLORIDE INJECTION [Suspect]
     Active Substance: SODIUM CHLORIDE
     Dosage: 1ST TO 3RD CHEMOTHERAPY WITH 0.9% SODIUM CHLORIDE + DEXAMETHASONE SODIUM PHOSPHATE + CYTOSAR.
     Route: 037
  32. AIYANG (PEGASPARGASE) [Suspect]
     Active Substance: PEGASPARGASE
     Indication: ACUTE LYMPHOCYTIC LEUKAEMIA
     Dosage: 1ST TO 3RD CHEMOTHERAPY.
     Route: 030
  33. DEXAMETHASONE SODIUM PHOSPHATE. [Suspect]
     Active Substance: DEXAMETHASONE SODIUM PHOSPHATE
     Dosage: DOSE RE-INTRODUCED WITH 0.9% SODIUM CHLORIDE + DEXAMETHASONE SODIUM PHOSPHATE + CYTOSAR.
     Route: 037
  34. 0.9% SODIUM CHLORIDE INJECTION [Suspect]
     Active Substance: SODIUM CHLORIDE
     Dosage: 4TH CHEMOTHERAPY WITH 0.9% SODIUM CHLORIDE + VINCRISTINE SULFATE.
     Route: 042
     Dates: start: 20190903, end: 20190903
  35. 0.9% SODIUM CHLORIDE INJECTION [Suspect]
     Active Substance: SODIUM CHLORIDE
     Dosage: DOSE RE-INTRODUCED WITH 0.9% SODIUM CHLORIDE + VINCRISTINE SULFATE.
     Route: 042
  36. AIYANG (PEGASPARGASE) [Suspect]
     Active Substance: PEGASPARGASE
     Dosage: DOSE RE-INTRODUCED
     Route: 030
  37. ENDOXAN [Suspect]
     Active Substance: CYCLOPHOSPHAMIDE
     Indication: ACUTE LYMPHOCYTIC LEUKAEMIA
     Dosage: 1ST TO 3RD CHEMOTHERAPY WITH ENDOXAN + 0.9% SODIUM CHLORIDE
     Route: 041
  38. METHOTREXATE. [Suspect]
     Active Substance: METHOTREXATE
     Indication: ACUTE LYMPHOCYTIC LEUKAEMIA
     Dosage: 1ST TO 3RD CHEMOTHERAPY WITH 0.9% SODIUM CHLORIDE + DEXAMETHASONE SODIUM PHOSPHATE + METHOTREXATE.
     Route: 037
  39. AIYANG (PEGASPARGASE) [Suspect]
     Active Substance: PEGASPARGASE
     Dosage: 4TH CHEMOTHERAPY
     Route: 030
     Dates: start: 20190827, end: 20190827
  40. VINCRISTINE SULFATE. [Suspect]
     Active Substance: VINCRISTINE SULFATE
     Indication: ACUTE LYMPHOCYTIC LEUKAEMIA
     Dosage: 1ST TO 3RD CHEMOTHERAPY WITH VINCRISTINE SULFATE + 0.9% SODIUM CHLORIDE.
     Route: 042
  41. DEXAMETHASONE SODIUM PHOSPHATE. [Suspect]
     Active Substance: DEXAMETHASONE SODIUM PHOSPHATE
     Dosage: 4TH CHEMOTHERAPY WITH 0.9% SODIUM CHLORIDE + DEXAMETHASONE SODIUM PHOSPHATE + CYTOSAR.
     Route: 037
     Dates: start: 20190827, end: 20190827

REACTIONS (1)
  - Bone marrow failure [Recovering/Resolving]

NARRATIVE: CASE EVENT DATE: 20190910
